FAERS Safety Report 7299233-9 (Version None)
Quarter: 2011Q1

REPORT INFORMATION
  Report Type: 
  Country: None (occurrence: None)
  Receive Date: 20110217
  Receipt Date: 20110210
  Transmission Date: 20110831
  Serious: Yes (Hospitalization)
  Sender: FDA-Public Use
  Company Number: CA-MERCK-1102USA01273

PATIENT
  Age: 80 Year
  Sex: Female
  Weight: 66 kg

DRUGS (5)
  1. FOSAMAX PLUS D [Suspect]
     Route: 048
  2. LIPITOR [Concomitant]
     Route: 048
  3. ZOPICLONE [Concomitant]
     Route: 048
  4. ENALAPRIL MALEATE [Concomitant]
     Route: 048
  5. ACEBUTOLOL [Concomitant]
     Route: 048

REACTIONS (1)
  - FEMUR FRACTURE [None]
